FAERS Safety Report 6034985-7 (Version None)
Quarter: 2009Q1

REPORT INFORMATION
  Report Type: 
  Country: None (occurrence: None)
  Receive Date: 20090109
  Receipt Date: 20090105
  Transmission Date: 20090719
  Serious: Yes (Death, Life-Threatening)
  Sender: FDA-Public Use
  Company Number: 2007-03320

PATIENT
  Age: 78 Year
  Sex: Male
  Weight: 49 kg

DRUGS (9)
  1. VELCADE [Suspect]
     Indication: MULTIPLE MYELOMA
     Dosage: 1.5 MG, INTRAVENOUS
     Route: 042
     Dates: start: 20070910, end: 20070921
  2. DEXAMETHASONE TAB [Suspect]
     Indication: MULTIPLE MYELOMA
     Dosage: 20.00 MG, INTRAVENOUS
     Route: 042
     Dates: start: 20070910, end: 20070922
  3. PAXIL [Concomitant]
  4. LEUCOCYTE POOR RED CELLS [Concomitant]
  5. ITRACONAZOLE [Concomitant]
  6. MAXIPIME [Concomitant]
  7. NEUTROGIN [Concomitant]
  8. PLATELETS [Concomitant]
  9. ORGARAN [Concomitant]

REACTIONS (8)
  - ASPARTATE AMINOTRANSFERASE INCREASED [None]
  - BLOOD AMYLASE INCREASED [None]
  - CEREBELLAR HAEMORRHAGE [None]
  - DEPRESSION [None]
  - DISSEMINATED INTRAVASCULAR COAGULATION [None]
  - FALL [None]
  - HYPERTENSION [None]
  - SEPSIS [None]
